FAERS Safety Report 9652427 (Version 2)
Quarter: 2013Q4

REPORT INFORMATION
  Report Type: Spontaneous
  Country: IT (occurrence: IT)
  Receive Date: 20131029
  Receipt Date: 20131106
  Transmission Date: 20140711
  Serious: Yes (Hospitalization)
  Sender: FDA-Public Use
  Company Number: IT-PFIZER INC-2013304758

PATIENT
  Age: 36 Year
  Sex: Female

DRUGS (2)
  1. XANAX [Suspect]
     Indication: DEPRESSION
     Dosage: 20 ML, TOTAL
     Route: 048
     Dates: start: 20131015, end: 20131015
  2. CIPRALEX [Concomitant]
     Dosage: 10 MG, UNK
     Route: 048

REACTIONS (3)
  - Overdose [Unknown]
  - Drug abuse [Unknown]
  - Sopor [Unknown]
